FAERS Safety Report 9612347 (Version 3)
Quarter: 2014Q1

REPORT INFORMATION
  Report Type: Spontaneous
  Country: JP (occurrence: JP)
  Receive Date: 20131010
  Receipt Date: 20140211
  Transmission Date: 20141002
  Serious: Yes (Death, Hospitalization)
  Sender: FDA-Public Use
  Company Number: JP-UCBSA-099622

PATIENT
  Age: 60 Year
  Sex: Female
  Weight: 46 kg

DRUGS (5)
  1. CIMZIA [Suspect]
     Indication: RHEUMATOID ARTHRITIS
     Dosage: 400 MG,SYRINGE
     Route: 058
     Dates: start: 20130716, end: 20130716
  2. PREDNISOLONE [Concomitant]
     Dosage: 4 MG
     Route: 048
  3. DEPAS [Concomitant]
     Dosage: 1.5 MG
     Route: 048
  4. TAKEPRON [Concomitant]
     Dosage: 15 MG
     Route: 048
  5. FAROM [Concomitant]
     Route: 048

REACTIONS (3)
  - Pneumonia [Fatal]
  - Urine output decreased [Unknown]
  - Oedema [Unknown]
